FAERS Safety Report 7893761 (Version 2)
Quarter: 2012Q4

REPORT INFORMATION
  Report Type: 
  Country: US (occurrence: US)
  Receive Date: 20110411
  Receipt Date: 20120928
  Transmission Date: 20130627
  Serious: No
  Sender: FDA-Public Use
  Company Number: US-US-EMD SERONO, INC.-7047481

PATIENT
  Age: 43 None
  Sex: Female

DRUGS (2)
  1. REBIF [Suspect]
     Indication: MULTIPLE SCLEROSIS
     Route: 058
     Dates: start: 20110304
  2. REBIF [Suspect]
     Route: 058
     Dates: start: 2011, end: 201202

REACTIONS (2)
  - Contusion [Unknown]
  - Headache [Unknown]
